FAERS Safety Report 9798549 (Version 1)
Quarter: 2014Q1

REPORT INFORMATION
  Report Type: Spontaneous
  Country: IT (occurrence: DE)
  Receive Date: 20140106
  Receipt Date: 20140106
  Transmission Date: 20141002
  Serious: Yes (Life-Threatening, Hospitalization, Disabling)
  Sender: FDA-Public Use
  Company Number: IT-WATSON-2013-23879

PATIENT
  Sex: Female
  Weight: 4 kg

DRUGS (3)
  1. METOPROLOL (UNKNOWN) [Suspect]
     Indication: PRODUCT USED FOR UNKNOWN INDICATION
     Dosage: 100 MG, DAILY
     Route: 064
     Dates: start: 20130610
  2. METOPROLOL (UNKNOWN) [Suspect]
     Dosage: 200 MG, UNK
     Route: 064
     Dates: start: 20130705
  3. CANDESARTAN (UNKNOWN) [Suspect]
     Indication: PRODUCT USED FOR UNKNOWN INDICATION
     Dosage: UNK
     Route: 064

REACTIONS (5)
  - Vena cava thrombosis [Unknown]
  - Cerebral infarction [Unknown]
  - Renal infarct [Unknown]
  - Renal impairment [Unknown]
  - Foetal exposure during pregnancy [Unknown]
